FAERS Safety Report 25885968 (Version 1)
Quarter: 2025Q4

REPORT INFORMATION
  Report Type: Spontaneous
  Country: US (occurrence: None)
  Receive Date: 20251004
  Receipt Date: 20251004
  Transmission Date: 20260118
  Serious: Yes (Hospitalization, Other)
  Sender: FDA-CTU
  Company Number: None

PATIENT
  Age: 14 Year
  Sex: Male
  Weight: 66.6 kg

DRUGS (3)
  1. DUPIXENT [Suspect]
     Active Substance: DUPILUMAB
     Indication: Asthma
     Dates: start: 20220901, end: 20240901
  2. DUPIXENT [Suspect]
     Active Substance: DUPILUMAB
     Indication: Multiple allergies
  3. Albuterol Ceterizine [Concomitant]

REACTIONS (5)
  - Limb injury [None]
  - Avulsion fracture [None]
  - Tibia fracture [None]
  - Enthesopathy [None]
  - Quality of life decreased [None]

NARRATIVE: CASE EVENT DATE: 20240723
